FAERS Safety Report 8533516 (Version 2)
Quarter: 2013Q2

REPORT INFORMATION
  Report Type: Spontaneous
  Country: US (occurrence: US)
  Receive Date: 20120427
  Receipt Date: 20130426
  Transmission Date: 20140414
  Serious: No
  Sender: FDA-Public Use
  Company Number: US-GLAXOSMITHKLINE-A0967497A

PATIENT
  Age: 81 Year
  Sex: Male
  Weight: 71.3 kg

DRUGS (6)
  1. ZOFRAN [Suspect]
     Indication: PRODUCT USED FOR UNKNOWN INDICATION
     Dosage: 8MG PER DAY
     Route: 048
     Dates: start: 2009, end: 20120515
  2. GLEEVEC [Concomitant]
  3. IRON [Concomitant]
  4. LIPITOR [Concomitant]
  5. RAMIPRIL [Concomitant]
  6. VITAMIN D [Concomitant]

REACTIONS (1)
  - Constipation [Recovering/Resolving]
